FAERS Safety Report 16405439 (Version 1)
Quarter: 2019Q2

REPORT INFORMATION
  Report Type: Spontaneous
  Country: US (occurrence: US)
  Receive Date: 20190607
  Receipt Date: 20190607
  Transmission Date: 20190711
  Serious: No
  Sender: FDA-Public Use
  Company Number: US-GALDERMA-US18033822

PATIENT
  Sex: Female

DRUGS (2)
  1. PROACTIV MD ADAPALENE ACNE TREATMENT [Suspect]
     Active Substance: ADAPALENE
     Indication: ACNE
     Dosage: 0.1 %, ADAPALENE ONLY ONE TIME
     Route: 061
     Dates: start: 20180505
  2. PROACTIV DEEP CLEANSING WASH [Concomitant]
     Active Substance: SALICYLIC ACID
     Indication: ACNE
     Route: 061
     Dates: start: 20180505

REACTIONS (6)
  - Myalgia [Recovering/Resolving]
  - Inappropriate schedule of product administration [Recovered/Resolved]
  - Skin irritation [Recovering/Resolving]
  - Underdose [Recovered/Resolved]
  - Pain of skin [Recovering/Resolving]
  - Eye pain [Recovering/Resolving]

NARRATIVE: CASE EVENT DATE: 20180526
